FAERS Safety Report 18180845 (Version 1)
Quarter: 2020Q3

REPORT INFORMATION
  Report Type: Spontaneous
  Country: US (occurrence: US)
  Receive Date: 20200820
  Receipt Date: 20200820
  Transmission Date: 20201103
  Serious: Yes (Hospitalization)
  Sender: FDA-Public Use
  Company Number: None

PATIENT
  Age: 41 Year
  Sex: Male

DRUGS (1)
  1. HUMIRA [Suspect]
     Active Substance: ADALIMUMAB
     Indication: PSORIASIS
     Dosage: ?          OTHER DOSE:40MG/0.4ML;?
     Route: 058
     Dates: start: 20180804

REACTIONS (1)
  - Decubitus ulcer [None]

NARRATIVE: CASE EVENT DATE: 20200820
